FAERS Safety Report 10086436 (Version 1)
Quarter: 2014Q2

REPORT INFORMATION
  Report Type: Spontaneous
  Country: US (occurrence: None)
  Receive Date: 20140417
  Receipt Date: 20140417
  Transmission Date: 20141212
  Serious: Yes (Hospitalization)
  Sender: FDA-Public Use
  Company Number: None

PATIENT
  Age: 75 Year
  Sex: Male
  Weight: 112 kg

DRUGS (1)
  1. ALFUZOSIN [Suspect]
     Dates: start: 20140311

REACTIONS (7)
  - Convulsion [None]
  - Postictal state [None]
  - Hypotension [None]
  - Heart injury [None]
  - Brain injury [None]
  - Syncope [None]
  - Troponin increased [None]
